FAERS Safety Report 8425992-5 (Version None)
Quarter: 2012Q2

REPORT INFORMATION
  Report Type: 
  Country: None (occurrence: None)
  Receive Date: 20120606
  Receipt Date: 20120606
  Transmission Date: 20120825
  Serious: Yes (Other)
  Sender: FDA-Public Use
  Company Number: None

PATIENT
  Sex: Female
  Weight: 87.0906 kg

DRUGS (1)
  1. ORENCIA 250 MG BRISTOL-MYERS SQUIBB [Suspect]
     Dosage: 750MG Q4W IV
     Route: 042
     Dates: start: 20110316

REACTIONS (3)
  - URTICARIA [None]
  - PRURITUS [None]
  - SWOLLEN TONGUE [None]
